FAERS Safety Report 7790762-8 (Version None)
Quarter: 2011Q3

REPORT INFORMATION
  Report Type: 
  Country: None (occurrence: None)
  Receive Date: 20110930
  Receipt Date: 20110113
  Transmission Date: 20111222
  Serious: Yes (Hospitalization)
  Sender: FDA-Public Use
  Company Number: PHHY2010DE56719

PATIENT
  Sex: Male
  Weight: 92 kg

DRUGS (7)
  1. BISOPROLOL [Concomitant]
     Dosage: 5 MG DAILY
     Route: 048
  2. RASILEZ [Suspect]
     Indication: HYPERTENSION
     Dosage: 150 MG DAILY
     Route: 048
     Dates: start: 20080609, end: 20081218
  3. BISOPROLOL [Concomitant]
     Indication: HYPERTENSION
     Dosage: 10 MG DAILY
     Route: 048
     Dates: start: 20011121
  4. CALCIUM CHANNEL BLOCKERS [Concomitant]
     Dosage: UNK
     Dates: start: 20090814
  5. IRBESARTAN AND HYDROCHLOROTHIAZIDE [Concomitant]
     Indication: HYPERTENSION
     Dosage: 300/12.5 MG, DAILY
     Route: 048
     Dates: start: 20061127
  6. AMLODIPINE [Concomitant]
     Indication: HYPERTENSION
     Dosage: 5 MG, PER DAY
     Route: 048
     Dates: start: 20090827
  7. DIURETICS [Concomitant]

REACTIONS (5)
  - SUPRAVENTRICULAR EXTRASYSTOLES [None]
  - HYPERTENSIVE HEART DISEASE [None]
  - VENOUS THROMBOSIS [None]
  - PULMONARY EMBOLISM [None]
  - HYPERTENSIVE CRISIS [None]
